FAERS Safety Report 6010184-X (Version None)
Quarter: 2008Q4

REPORT INFORMATION
  Report Type: 
  Country: None (occurrence: None)
  Receive Date: 20081217
  Receipt Date: 20081217
  Transmission Date: 20090506
  Serious: No
  Sender: FDA-Public Use
  Company Number: None

PATIENT
  Sex: Female
  Weight: 61.2356 kg

DRUGS (1)
  1. METFORMIN HCL [Suspect]
     Indication: DIABETES MELLITUS
     Dosage: 500 MG 1 A DAY
     Dates: start: 20081117, end: 20081121

REACTIONS (7)
  - ARTHRITIS [None]
  - GAIT DISTURBANCE [None]
  - MALAISE [None]
  - MOVEMENT DISORDER [None]
  - PAIN [None]
  - RHINORRHOEA [None]
  - SNEEZING [None]
